FAERS Safety Report 20298805 (Version 4)
Quarter: 2022Q1

REPORT INFORMATION
  Report Type: Report from Study
  Country: US (occurrence: US)
  Receive Date: 20220105
  Receipt Date: 20220228
  Transmission Date: 20220424
  Serious: Yes (Hospitalization)
  Sender: FDA-Public Use
  Company Number: US-ALNYLAM PHARMACEUTICALS, INC.-ALN-2021-003500

PATIENT

DRUGS (1)
  1. ONPATTRO [Suspect]
     Active Substance: PATISIRAN SODIUM
     Indication: Product used for unknown indication
     Dosage: 16 MILLIGRAM, Q3W
     Route: 042
     Dates: start: 20211113

REACTIONS (7)
  - Burning sensation [Unknown]
  - Peripheral swelling [Unknown]
  - Pyrexia [Unknown]
  - Infusion site extravasation [Unknown]
  - Central venous catheterisation [Unknown]
  - Product dose omission issue [Unknown]
  - Product dose omission issue [Unknown]

NARRATIVE: CASE EVENT DATE: 20211224
